FAERS Safety Report 9354191 (Version 1)
Quarter: 2013Q2

REPORT INFORMATION
  Report Type: Spontaneous
  Country: CN (occurrence: CN)
  Receive Date: 20130618
  Receipt Date: 20130618
  Transmission Date: 20140414
  Serious: Yes (Other)
  Sender: FDA-Public Use
  Company Number: CN-GLAXOSMITHKLINE-B0900309A

PATIENT
  Age: 43 Year
  Sex: Male
  Weight: 68 kg

DRUGS (1)
  1. SEROXAT [Suspect]
     Indication: BIPOLAR II DISORDER
     Dosage: 20MG PER DAY
     Route: 048
     Dates: start: 20121127, end: 20121203

REACTIONS (3)
  - Mania [Recovering/Resolving]
  - Agitation [Recovering/Resolving]
  - Speech disorder [Recovering/Resolving]
